FAERS Safety Report 9139916 (Version 2)
Quarter: 2013Q2

REPORT INFORMATION
  Report Type: Spontaneous
  Country: US (occurrence: US)
  Receive Date: 20130305
  Receipt Date: 20130426
  Transmission Date: 20140414
  Serious: Yes (Other)
  Sender: FDA-Public Use
  Company Number: US-PFIZER INC-2013074944

PATIENT
  Age: 80 Year
  Sex: Female
  Weight: 82.54 kg

DRUGS (2)
  1. LIPITOR [Suspect]
     Dosage: 10 MG, 1X/DAY
  2. NORVASC [Suspect]
     Indication: CARDIAC DISORDER
     Dosage: 10 MG, 1X/DAY
     Dates: start: 1986

REACTIONS (3)
  - Cerebrovascular accident [Recovered/Resolved with Sequelae]
  - Mobility decreased [Unknown]
  - Amnesia [Unknown]
